FAERS Safety Report 9216220 (Version 1)
Quarter: 2013Q2

REPORT INFORMATION
  Report Type: Spontaneous
  Country: JP (occurrence: JP)
  Receive Date: 20130408
  Receipt Date: 20130408
  Transmission Date: 20140414
  Serious: Yes (Other)
  Sender: FDA-Public Use
  Company Number: JP-ASTELLAS-2013JP004649

PATIENT
  Sex: Female

DRUGS (1)
  1. BETANIS [Suspect]
     Dosage: 50 MG, TID
     Route: 048

REACTIONS (5)
  - Intentional overdose [Unknown]
  - Pneumonia [Unknown]
  - Memory impairment [Unknown]
  - Cognitive disorder [Unknown]
  - Pyrexia [Unknown]
